FAERS Safety Report 11627618 (Version 2)
Quarter: 2016Q1

REPORT INFORMATION
  Report Type: Spontaneous
  Country: US (occurrence: US)
  Receive Date: 20151014
  Receipt Date: 20160111
  Transmission Date: 20160525
  Serious: No
  Sender: FDA-Public Use
  Company Number: US-TEVA-596592USA

PATIENT
  Age: 66 Year
  Sex: Male
  Weight: 70.37 kg

DRUGS (1)
  1. ESOMEPRAZOLE [Suspect]
     Active Substance: ESOMEPRAZOLE
     Indication: GASTROOESOPHAGEAL REFLUX DISEASE
     Dosage: 40 MILLIGRAM DAILY;
     Route: 065
     Dates: start: 20150701, end: 20150916

REACTIONS (8)
  - Drug ineffective [Unknown]
  - Dyspepsia [Recovering/Resolving]
  - Abdominal pain upper [Recovering/Resolving]
  - Product substitution issue [Unknown]
  - Hiccups [Recovering/Resolving]
  - Gastritis [Recovering/Resolving]
  - Abdominal pain lower [Recovering/Resolving]
  - Polyp [Unknown]

NARRATIVE: CASE EVENT DATE: 201507
